FAERS Safety Report 9440721 (Version 1)
Quarter: 2013Q3

REPORT INFORMATION
  Report Type: Report from Study
  Country: US (occurrence: US)
  Receive Date: 20130805
  Receipt Date: 20130805
  Transmission Date: 20140515
  Serious: Yes (Other)
  Sender: FDA-Public Use
  Company Number: US-ABBOTT-13P-163-1129021-00

PATIENT
  Sex: Female
  Weight: 75.82 kg

DRUGS (3)
  1. HUMIRA [Suspect]
     Indication: RHEUMATOID ARTHRITIS
     Route: 058
     Dates: start: 2003, end: 200901
  2. HUMIRA [Suspect]
     Dates: start: 201106, end: 201203
  3. HUMIRA [Suspect]
     Dates: start: 201212, end: 20130714

REACTIONS (1)
  - Abortion spontaneous [Unknown]
